FAERS Safety Report 6865472-1 (Version None)
Quarter: 2010Q3

REPORT INFORMATION
  Report Type: 
  Country: None (occurrence: None)
  Receive Date: 20100721
  Receipt Date: 20080818
  Transmission Date: 20110219
  Serious: Yes (Other)
  Sender: FDA-Public Use
  Company Number: US-PFIZER INC-2008034499

PATIENT
  Sex: Female
  Weight: 78 kg

DRUGS (4)
  1. CHANTIX [Suspect]
     Indication: SMOKING CESSATION THERAPY
     Dates: start: 20080407, end: 20080414
  2. ATIVAN [Suspect]
  3. LITHIUM CARBONATE [Concomitant]
  4. TOPAMAX [Concomitant]

REACTIONS (8)
  - ANGER [None]
  - HEADACHE [None]
  - ILL-DEFINED DISORDER [None]
  - IRRITABILITY [None]
  - METRORRHAGIA [None]
  - STRESS [None]
  - UTERINE ENLARGEMENT [None]
  - VOMITING [None]
